FAERS Safety Report 4967372-0 (Version None)
Quarter: 2006Q2

REPORT INFORMATION
  Report Type: 
  Country: None (occurrence: None)
  Receive Date: 20060404
  Receipt Date: 20060321
  Transmission Date: 20061013
  Serious: Yes (Hospitalization)
  Sender: FDA-Public Use
  Company Number: HQWYE427321MAR06

PATIENT
  Age: 65 Year
  Sex: Female

DRUGS (3)
  1. PROTONIX [Suspect]
  2. OXAZEPAM [Concomitant]
  3. PROPRANOLOL [Concomitant]

REACTIONS (19)
  - ANOREXIA [None]
  - ANTIBODY TEST POSITIVE [None]
  - ANTINEUTROPHIL CYTOPLASMIC ANTIBODY POSITIVE [None]
  - CUTANEOUS VASCULITIS [None]
  - EAR DISCOMFORT [None]
  - FATIGUE [None]
  - GLOMERULONEPHRITIS [None]
  - GLOMERULOSCLEROSIS [None]
  - GRANULOMA [None]
  - HAEMODIALYSIS [None]
  - HAEMOGLOBIN DECREASED [None]
  - NEPHRITIS INTERSTITIAL [None]
  - NIGHT SWEATS [None]
  - PLATELET COUNT DECREASED [None]
  - PYREXIA [None]
  - RENAL FAILURE [None]
  - TINNITUS [None]
  - WEIGHT DECREASED [None]
  - WHITE BLOOD CELL COUNT INCREASED [None]
